FAERS Safety Report 17118658 (Version 8)
Quarter: 2020Q4

REPORT INFORMATION
  Report Type: Report from Study
  Country: US (occurrence: US)
  Receive Date: 20191206
  Receipt Date: 20201028
  Transmission Date: 20210113
  Serious: Yes (Other)
  Sender: FDA-Public Use
  Company Number: NVSC2019US060304

PATIENT
  Age: 54 Year
  Sex: Female

DRUGS (4)
  1. MAYZENT [Suspect]
     Active Substance: SIPONIMOD
     Indication: RELAPSING-REMITTING MULTIPLE SCLEROSIS
     Dosage: 2 MG, QD
     Route: 048
  2. MAYZENT [Suspect]
     Active Substance: SIPONIMOD
     Indication: CLINICALLY ISOLATED SYNDROME
     Dosage: 2 MG, QD
     Route: 048
     Dates: start: 20191111
  3. MAYZENT [Suspect]
     Active Substance: SIPONIMOD
     Indication: MULTIPLE SCLEROSIS
     Dosage: 2 MG, QD
     Route: 048
     Dates: start: 20191031
  4. MAYZENT [Suspect]
     Active Substance: SIPONIMOD
     Indication: SECONDARY PROGRESSIVE MULTIPLE SCLEROSIS

REACTIONS (12)
  - Diarrhoea [Recovering/Resolving]
  - Abdominal distension [Unknown]
  - Stomatitis [Unknown]
  - Contusion [Unknown]
  - Dyspnoea [Unknown]
  - Cognitive disorder [Unknown]
  - Lung disorder [Unknown]
  - Neuropathy peripheral [Unknown]
  - Multiple sclerosis [Unknown]
  - Migraine with aura [Recovering/Resolving]
  - Ocular discomfort [Recovering/Resolving]
  - Band sensation [Unknown]

NARRATIVE: CASE EVENT DATE: 20191111
